FAERS Safety Report 25925604 (Version 2)
Quarter: 2025Q4

REPORT INFORMATION
  Report Type: Spontaneous
  Country: US (occurrence: US)
  Receive Date: 20251015
  Receipt Date: 20251021
  Transmission Date: 20260118
  Serious: No
  Sender: SANOFI AVENTIS
  Company Number: US-SA-2025SA305037

PATIENT
  Age: 73 Year
  Sex: Male

DRUGS (3)
  1. SOLIQUA 100/33 [Suspect]
     Active Substance: INSULIN GLARGINE\LIXISENATIDE
     Indication: Blood glucose increased
     Dosage: 60 IU, QD
     Route: 065
  2. ADMELOG [Suspect]
     Active Substance: INSULIN LISPRO
     Indication: Blood glucose increased
     Dosage: 16 IU, QD
     Route: 057
  3. INSULIN ASPART [Suspect]
     Active Substance: INSULIN ASPART
     Dosage: UNK

REACTIONS (2)
  - Off label use [Unknown]
  - Incorrect route of product administration [Unknown]
